FAERS Safety Report 7760690-2 (Version None)
Quarter: 2011Q3

REPORT INFORMATION
  Report Type: 
  Country: None (occurrence: None)
  Receive Date: 20110919
  Receipt Date: 20110913
  Transmission Date: 20111222
  Serious: Yes (Death, Hospitalization)
  Sender: FDA-Public Use
  Company Number: BR-BAXTER-2011BH029364

PATIENT
  Age: 32 Year
  Sex: Female

DRUGS (3)
  1. LEUCOVORIN CALCIUM [Suspect]
     Indication: BREAST CANCER
     Route: 065
  2. CYCLOPHOSPHAMIDE [Suspect]
     Indication: BREAST CANCER
     Route: 065
  3. METHOTREXATE [Suspect]
     Indication: BREAST CANCER
     Route: 065

REACTIONS (3)
  - FEBRILE NEUTROPENIA [None]
  - HAEMODYNAMIC INSTABILITY [None]
  - SEPSIS [None]
